FAERS Safety Report 9736987 (Version 2)
Quarter: 2013Q4

REPORT INFORMATION
  Report Type: Spontaneous
  Country: US (occurrence: US)
  Receive Date: 20131206
  Receipt Date: 20131206
  Transmission Date: 20140711
  Serious: No
  Sender: FDA-Public Use
  Company Number: US-GILEAD-2009-0022678

PATIENT
  Sex: Female
  Weight: 50.8 kg

DRUGS (13)
  1. LETAIRIS [Suspect]
     Indication: PULMONARY ARTERIAL HYPERTENSION
     Route: 048
     Dates: start: 20090604
  2. ZEMPLAR [Suspect]
  3. SLOW-MAG [Suspect]
  4. TRILIPIX [Suspect]
  5. COREG [Concomitant]
  6. LASIX [Concomitant]
  7. EXELON [Concomitant]
  8. MULTIVITAMIN [Concomitant]
  9. LEXAPRO [Concomitant]
  10. NAMENDA [Concomitant]
  11. SPIRIVA [Concomitant]
  12. ASPIRIN [Concomitant]
  13. PROCRIT [Concomitant]

REACTIONS (1)
  - Dizziness [Unknown]
